FAERS Safety Report 12228132 (Version 1)
Quarter: 2016Q1

REPORT INFORMATION
  Report Type: Spontaneous
  Country: US (occurrence: None)
  Receive Date: 20160330
  Receipt Date: 20160330
  Transmission Date: 20160526
  Serious: Yes (Disabling)
  Sender: FDA-Public Use
  Company Number: None

PATIENT
  Age: 64 Year
  Sex: Female

DRUGS (8)
  1. BP MED [Concomitant]
  2. LOSARTAN. [Concomitant]
     Active Substance: LOSARTAN
  3. DAILY VITAMIN [Concomitant]
     Active Substance: VITAMINS
  4. TOBRAMYCIN + DEXAMETHASONE OPHTHAL, 10 ML BAUSCH + LOMB [Suspect]
     Active Substance: DEXAMETHASONE\TOBRAMYCIN
     Indication: ANOSMIA
     Dosage: 3 SPRAY(S)
     Route: 045
     Dates: start: 20160205, end: 20160205
  5. VIT B [Concomitant]
     Active Substance: VITAMIN B
  6. VITAMIN D3 [Concomitant]
     Active Substance: CHOLECALCIFEROL
  7. PROBIOTIC [Concomitant]
     Active Substance: PROBIOTICS NOS
  8. FISH OIL [Concomitant]
     Active Substance: FISH OIL

REACTIONS (5)
  - Ageusia [None]
  - Vomiting [None]
  - Headache [None]
  - Sinus headache [None]
  - Anosmia [None]

NARRATIVE: CASE EVENT DATE: 20160205
